FAERS Safety Report 22925713 (Version 2)
Quarter: 2023Q4

REPORT INFORMATION
  Report Type: Report from Study
  Country: BR (occurrence: BR)
  Receive Date: 20230908
  Receipt Date: 20231005
  Transmission Date: 20240110
  Serious: Yes (Hospitalization)
  Sender: FDA-Public Use
  Company Number: BR-JNJFOC-20230545649

PATIENT
  Age: 72 Year
  Sex: Male
  Weight: 72 kg

DRUGS (4)
  1. DARATUMUMAB [Suspect]
     Active Substance: DARATUMUMAB
     Indication: Plasma cell myeloma
     Dosage: MOST RECENT DOSE PRIOR TO CVA WAS CYCLE 54 ON 01AUG2023;  ALSO REPORTED AS INTRAVENOUS.
     Route: 058
     Dates: start: 20190704, end: 20230801
  2. BORTEZOMIB [Suspect]
     Active Substance: BORTEZOMIB
     Indication: Plasma cell myeloma
     Dosage: RECENT DOSE: 4-APR-2023
     Route: 058
     Dates: start: 20190704, end: 20230404
  3. LENALIDOMIDE [Suspect]
     Active Substance: LENALIDOMIDE
     Indication: Plasma cell myeloma
     Dosage: CYCLE 54 PERIOD OF TREATMENT 01AUG2023 TO 21AUG2023
     Route: 065
     Dates: end: 20230821
  4. DEXAMETHASONE [Concomitant]
     Active Substance: DEXAMETHASONE
     Indication: Plasma cell myeloma
     Dosage: CYCLE 54 DAY 22 ON 22AUG2023
     Route: 065
     Dates: end: 20230822

REACTIONS (2)
  - Cerebrovascular accident [Recovered/Resolved]
  - Pneumonia bacterial [Recovered/Resolved]

NARRATIVE: CASE EVENT DATE: 20230417
